FAERS Safety Report 10049119 (Version 1)
Quarter: 2014Q2

REPORT INFORMATION
  Report Type: Report from Study
  Country: CA (occurrence: CA)
  Receive Date: 20140401
  Receipt Date: 20140401
  Transmission Date: 20141212
  Serious: Yes (Other)
  Sender: FDA-Public Use
  Company Number: CA-ROCHE-1362084

PATIENT
  Sex: Male

DRUGS (4)
  1. PEGASYS [Suspect]
     Indication: HEPATITIS C
     Route: 058
  2. RIBAVIRIN [Suspect]
     Indication: HEPATITIS C
     Route: 048
  3. INTERFERON ALFA-2A [Suspect]
     Indication: CHRONIC HEPATITIS C
     Route: 065
  4. VICTRELIS [Suspect]
     Indication: HEPATITIS C
     Route: 048

REACTIONS (9)
  - Osteoarthritis [Unknown]
  - Cognitive disorder [Unknown]
  - Haemoglobin decreased [Unknown]
  - Depression [Unknown]
  - Fibromyalgia [Unknown]
  - Feeling cold [Unknown]
  - Weight decreased [Unknown]
  - Muscle atrophy [Unknown]
  - No therapeutic response [Unknown]
